FAERS Safety Report 20394055 (Version 1)
Quarter: 2022Q1

REPORT INFORMATION
  Report Type: Spontaneous
  Country: US (occurrence: US)
  Receive Date: 20220129
  Receipt Date: 20220129
  Transmission Date: 20220423
  Serious: Yes (Other)
  Sender: FDA-Public Use
  Company Number: US-NOVARTISPH-NVSC2022US016072

PATIENT
  Age: 71 Year
  Sex: Female
  Weight: 43.537 kg

DRUGS (3)
  1. GLEEVEC [Suspect]
     Active Substance: IMATINIB MESYLATE
     Indication: Product used for unknown indication
     Route: 065
  2. SUNITINIB MALATE [Suspect]
     Active Substance: SUNITINIB MALATE
     Indication: Product used for unknown indication
     Dosage: 50 MG, Q4W (2 WEEKS OFF)
     Route: 065
     Dates: start: 20211223
  3. LISINOPRIL [Concomitant]
     Active Substance: LISINOPRIL
     Dosage: UNK
     Route: 065
     Dates: start: 20211230

REACTIONS (12)
  - Gastrointestinal stromal tumour [Unknown]
  - Dyspepsia [Unknown]
  - Nausea [Unknown]
  - Eructation [Unknown]
  - Hypertension [Unknown]
  - Stomatitis [Unknown]
  - Dry mouth [Unknown]
  - Fatigue [Unknown]
  - Asthenia [Unknown]
  - Constipation [Unknown]
  - Chills [Unknown]
  - Myalgia [Unknown]

NARRATIVE: CASE EVENT DATE: 20211223
